FAERS Safety Report 12326624 (Version 3)
Quarter: 2016Q2

REPORT INFORMATION
  Report Type: Spontaneous
  Country: IT (occurrence: IT)
  Receive Date: 20160503
  Receipt Date: 20160620
  Transmission Date: 20160815
  Serious: Yes (Hospitalization, Other)
  Sender: FDA-Public Use
  Company Number: IT-TEVA-656897ACC

PATIENT
  Age: 8 Month
  Sex: Male

DRUGS (2)
  1. AMOXICILLIN + CLAVULANIC ACID [Suspect]
     Active Substance: AMOXICILLIN\CLAVULANIC ACID
     Indication: PYREXIA
     Route: 065
  2. SALBUTAMOL + IPRATROPIUM BROMIDE [Suspect]
     Active Substance: ALBUTEROL\IPRATROPIUM BROMIDE
     Indication: PRODUCT USED FOR UNKNOWN INDICATION
     Dosage: SALBUTAMOL: 5 ML
     Route: 048

REACTIONS (8)
  - Cough [Recovered/Resolved]
  - Agitation [Recovered/Resolved]
  - Rash [Recovered/Resolved]
  - Drug prescribing error [Recovered/Resolved]
  - Irritability [Recovered/Resolved]
  - Hyperpyrexia [Recovered/Resolved]
  - Dry mouth [Recovered/Resolved]
  - Tachypnoea [Recovered/Resolved]
